FAERS Safety Report 7634338-1 (Version None)
Quarter: 2011Q3

REPORT INFORMATION
  Report Type: 
  Country: None (occurrence: None)
  Receive Date: 20110725
  Receipt Date: 20110425
  Transmission Date: 20111222
  Serious: No
  Sender: FDA-Public Use
  Company Number: -MYLANLABS-2011S1008568

PATIENT
  Age: 75 Year
  Sex: Female

DRUGS (5)
  1. AVAPRO [Concomitant]
  2. CLONAZEPAM [Suspect]
     Indication: ANXIETY
     Route: 048
     Dates: start: 20110401, end: 20110401
  3. THYROID HORMONES [Concomitant]
  4. MECLIZINE [Concomitant]
  5. BUSPIRONE HCL [Suspect]
     Indication: ANXIETY
     Route: 048
     Dates: start: 20110421

REACTIONS (3)
  - DIZZINESS [None]
  - FLUSHING [None]
  - BLOOD PRESSURE INCREASED [None]
